FAERS Safety Report 5416783-8 (Version None)
Quarter: 2007Q3

REPORT INFORMATION
  Report Type: 
  Country: None (occurrence: None)
  Receive Date: 20070816
  Receipt Date: 20070807
  Transmission Date: 20080115
  Serious: Yes (Other)
  Sender: FDA-Public Use
  Company Number: US-ROCHE-496036

PATIENT
  Age: 53 Year
  Sex: Female

DRUGS (4)
  1. PEGASYS [Suspect]
     Route: 065
     Dates: start: 20070209, end: 20070601
  2. PEGASYS [Suspect]
     Route: 065
     Dates: start: 20070601, end: 20070727
  3. COPEGUS [Suspect]
     Route: 065
     Dates: start: 20070209, end: 20070503
  4. COPEGUS [Suspect]
     Dosage: DOSAGE DECREASED DUE TO ANEMIA
     Route: 065
     Dates: start: 20070501, end: 20070727

REACTIONS (12)
  - ABDOMINAL DISTENSION [None]
  - ANAEMIA [None]
  - DYSPNOEA EXERTIONAL [None]
  - GLOSSODYNIA [None]
  - INJECTION SITE BRUISING [None]
  - INJECTION SITE HAEMORRHAGE [None]
  - PYREXIA [None]
  - RED BLOOD CELL COUNT DECREASED [None]
  - RENAL IMPAIRMENT [None]
  - TONGUE DISORDER [None]
  - VISION BLURRED [None]
  - WHITE BLOOD CELL COUNT DECREASED [None]
